FAERS Safety Report 6252079-2 (Version None)
Quarter: 2009Q2

REPORT INFORMATION
  Report Type: 
  Country: None (occurrence: None)
  Receive Date: 20090630
  Receipt Date: 20040705
  Transmission Date: 20091009
  Serious: Yes (Hospitalization)
  Sender: FDA-Public Use
  Company Number: US-ROCHE-638785

PATIENT
  Sex: Female

DRUGS (3)
  1. ENFUVIRTIDE [Suspect]
     Indication: HIV INFECTION
     Route: 065
     Dates: start: 20040527, end: 20080128
  2. INVIRASE [Concomitant]
     Dates: start: 20040327, end: 20070322
  3. KALETRA [Concomitant]
     Dates: start: 20040527, end: 20070322

REACTIONS (1)
  - SYNCOPE [None]
